FAERS Safety Report 5370873-7 (Version None)
Quarter: 2007Q2

REPORT INFORMATION
  Report Type: 
  Country: None (occurrence: None)
  Receive Date: 20070626
  Receipt Date: 20070621
  Transmission Date: 20071010
  Serious: Yes (Life-Threatening, Hospitalization)
  Sender: FDA-Public Use
  Company Number: JP-GENENTECH-237756

PATIENT
  Sex: Female
  Weight: 58 kg

DRUGS (5)
  1. RITUXAN [Suspect]
     Indication: NON-HODGKIN'S LYMPHOMA
     Dosage: 500 MG, QD
     Route: 042
     Dates: start: 20050627
  2. ADRIAMYCIN PFS [Suspect]
     Indication: NON-HODGKIN'S LYMPHOMA
     Dosage: 5040 MG, UNK
     Route: 042
     Dates: start: 20050629
  3. ENDOXAN [Suspect]
     Indication: NON-HODGKIN'S LYMPHOMA
     Dosage: 800 MG, UNK
     Route: 042
     Dates: start: 20050629
  4. ONCOVIN [Suspect]
     Indication: NON-HODGKIN'S LYMPHOMA
     Dosage: 1.5 MG, UNK
     Route: 042
     Dates: start: 20050629
  5. PREDNISONE TAB [Suspect]
     Indication: NON-HODGKIN'S LYMPHOMA
     Dosage: 50 MG, UNK
     Route: 048
     Dates: start: 20050629

REACTIONS (1)
  - BILE DUCT CANCER [None]
